FAERS Safety Report 15498141 (Version 3)
Quarter: 2020Q2

REPORT INFORMATION
  Report Type: Spontaneous
  Country: US (occurrence: US)
  Receive Date: 20181015
  Receipt Date: 20200601
  Transmission Date: 20200713
  Serious: No
  Sender: FDA-Public Use
  Company Number: US-PFIZER INC-2018414457

PATIENT
  Age: 38 Year
  Sex: Female

DRUGS (2)
  1. XELJANZ XR [Suspect]
     Active Substance: TOFACITINIB CITRATE
     Indication: RHEUMATOID ARTHRITIS
     Dosage: 11 MG, DAILY (TAKE 1 TABLET BY MOUTH DAILY)
     Route: 048
     Dates: start: 201809
  2. XELJANZ XR [Suspect]
     Active Substance: TOFACITINIB CITRATE
     Dosage: 11 MG, DAILY (TAKE 1 TABLET BY MOUTH DAILY)
     Route: 048

REACTIONS (7)
  - Malaise [Recovered/Resolved]
  - Chills [Recovered/Resolved]
  - Pain [Recovered/Resolved]
  - Influenza like illness [Recovered/Resolved]
  - Pyrexia [Recovered/Resolved]
  - Vomiting [Recovered/Resolved]
  - Product dose omission [Unknown]
